FAERS Safety Report 23561638 (Version 3)
Quarter: 2024Q3

REPORT INFORMATION
  Report Type: Report from Study
  Country: US (occurrence: US)
  Receive Date: 20240225
  Receipt Date: 20240926
  Transmission Date: 20241017
  Serious: No
  Sender: GLAXOSMITHKLINE
  Company Number: US-GLAXOSMITHKLINE-US2024AMR022244

PATIENT
  Age: 44 Year
  Sex: Male

DRUGS (2)
  1. NIRAPARIB [Suspect]
     Active Substance: NIRAPARIB
     Indication: Malignant peritoneal neoplasm
     Dosage: 200 MG, QD
     Route: 048
     Dates: start: 20240129, end: 20240212
  2. EVEROLIMUS [Concomitant]
     Active Substance: EVEROLIMUS
     Indication: Product used for unknown indication
     Dosage: UNK

REACTIONS (4)
  - Platelet count decreased [Recovered/Resolved]
  - Nausea [Not Recovered/Not Resolved]
  - Vomiting [Recovering/Resolving]
  - Diarrhoea [Recovered/Resolved]

NARRATIVE: CASE EVENT DATE: 20240212
